FAERS Safety Report 10400217 (Version 3)
Quarter: 2015Q2

REPORT INFORMATION
  Report Type: Spontaneous
  Country: GB (occurrence: GB)
  Receive Date: 20140821
  Receipt Date: 20150415
  Transmission Date: 20150821
  Serious: Yes (Other)
  Sender: FDA-Public Use
  Company Number: GB-WATSON-2014-17908

PATIENT
  Age: 52 Year
  Sex: Female
  Weight: 63.5 kg

DRUGS (1)
  1. DOXYCYCLINE HYCLATE. [Suspect]
     Active Substance: DOXYCYCLINE HYCLATE
     Indication: SINUS CONGESTION
     Dosage: 200 MG, UNKNOWN
     Route: 048

REACTIONS (6)
  - Condition aggravated [Unknown]
  - Anosmia [Recovered/Resolved with Sequelae]
  - Urticaria [Recovered/Resolved]
  - Pain [Recovered/Resolved with Sequelae]
  - Abscess oral [Recovered/Resolved]
  - Raynaud^s phenomenon [Not Recovered/Not Resolved]

NARRATIVE: CASE EVENT DATE: 20140318
